FAERS Safety Report 22066047 (Version 4)
Quarter: 2025Q4

REPORT INFORMATION
  Report Type: Spontaneous
  Country: JP (occurrence: JP)
  Receive Date: 20230306
  Receipt Date: 20251106
  Transmission Date: 20260118
  Serious: Yes (Other)
  Sender: OTSUKA
  Company Number: JP-OTSUKA-2023_005541

PATIENT
  Age: 51 Year
  Sex: Female

DRUGS (1)
  1. ARIPIPRAZOLE [Suspect]
     Active Substance: ARIPIPRAZOLE
     Indication: Schizophrenia
     Dosage: 24 MG

REACTIONS (5)
  - Hallucination, auditory [Recovering/Resolving]
  - Persecutory delusion [Recovering/Resolving]
  - Malaise [Recovering/Resolving]
  - Behaviour disorder [Recovering/Resolving]
  - Fatigue [Recovering/Resolving]
